FAERS Safety Report 21913596 (Version 1)
Quarter: 2023Q1

REPORT INFORMATION
  Report Type: Spontaneous
  Country: US (occurrence: US)
  Receive Date: 20230125
  Receipt Date: 20230125
  Transmission Date: 20230418
  Serious: No
  Sender: FDA-Public Use
  Company Number: US-ALLERGAN-2215124US

PATIENT
  Sex: Female

DRUGS (8)
  1. BOTOX COSMETIC [Suspect]
     Active Substance: ONABOTULINUMTOXINA
     Indication: Lip cosmetic procedure
     Dosage: 42 UNITS, SINGLE
  2. BOTOX COSMETIC [Suspect]
     Active Substance: ONABOTULINUMTOXINA
     Indication: Skin wrinkling
     Dosage: 21 UNITS, SINGLE,10 UNITS ON LEFT AND 11 UNITS ON RIGHT SIDE
     Route: 030
     Dates: start: 20220407, end: 20220407
  3. BOTOX COSMETIC [Suspect]
     Active Substance: ONABOTULINUMTOXINA
     Indication: Skin wrinkling
     Dosage: UNK, SINGLE
     Route: 030
     Dates: start: 20220407, end: 20220407
  4. BOTOX COSMETIC [Suspect]
     Active Substance: ONABOTULINUMTOXINA
     Indication: Skin wrinkling
     Dosage: UNK, SINGLE
     Route: 030
     Dates: start: 20220407, end: 20220407
  5. BOTOX COSMETIC [Suspect]
     Active Substance: ONABOTULINUMTOXINA
     Dosage: UNK, SINGLE, LOWER 2 UNITS
     Route: 030
     Dates: start: 20220407, end: 20220407
  6. AMBIEN [Concomitant]
     Active Substance: ZOLPIDEM TARTRATE
     Indication: Sleep disorder
     Dosage: UNK
  7. CEFIXIME [Concomitant]
     Active Substance: CEFIXIME
     Indication: Myalgia
     Dosage: UNK
  8. DIAZEPAM [Concomitant]
     Active Substance: DIAZEPAM
     Dosage: UNK

REACTIONS (4)
  - Product preparation error [Unknown]
  - Off label use [Unknown]
  - Product quality issue [Unknown]
  - Drug ineffective [Unknown]
